FAERS Safety Report 7237221-9 (Version None)
Quarter: 2011Q1

REPORT INFORMATION
  Report Type: 
  Country: None (occurrence: None)
  Receive Date: 20110121
  Receipt Date: 20110118
  Transmission Date: 20110831
  Serious: Yes (Hospitalization)
  Sender: FDA-Public Use
  Company Number: US-ABBOTT-11P-163-0698551-00

PATIENT
  Age: 75 Year
  Sex: Male
  Weight: 115.77 kg

DRUGS (5)
  1. NEXIUM [Concomitant]
     Indication: PRODUCT USED FOR UNKNOWN INDICATION
     Dates: start: 20071031
  2. CELECOXIB; IBUPROFEN; NAPROXEN; PLACEBO [Suspect]
     Indication: OSTEOARTHRITIS
     Dates: start: 20071031
  3. CELECOXIB; IBUPROFEN; NAPROXEN; PLACEBO [Suspect]
     Indication: RHEUMATOID ARTHRITIS
  4. HYTRIN [Suspect]
     Indication: PRODUCT USED FOR UNKNOWN INDICATION
     Dates: end: 20101205
  5. VERAPAMIL [Suspect]
     Indication: PRODUCT USED FOR UNKNOWN INDICATION
     Dates: end: 20101205

REACTIONS (2)
  - ORTHOSTATIC HYPOTENSION [None]
  - DYSARTHRIA [None]
